FAERS Safety Report 8221721-9 (Version None)
Quarter: 2012Q1

REPORT INFORMATION
  Report Type: 
  Country: None (occurrence: None)
  Receive Date: 20120320
  Receipt Date: 20120312
  Transmission Date: 20120608
  Serious: Yes (Other)
  Sender: FDA-Public Use
  Company Number: US-BAYER-2011-075515

PATIENT
  Age: 34 Year
  Sex: Female
  Weight: 92.517 kg

DRUGS (4)
  1. MOTRIN [Concomitant]
     Dosage: UNK
     Dates: start: 19980101
  2. YAZ [Suspect]
     Indication: PREMENSTRUAL SYNDROME
  3. YAZ [Suspect]
     Indication: CONTRACEPTION
     Dosage: UNK
     Dates: start: 20080101, end: 20090101
  4. IBUPROFEN (ADVIL) [Concomitant]
     Dosage: UNK
     Dates: start: 19980101

REACTIONS (4)
  - CHOLECYSTECTOMY [None]
  - CHOLECYSTITIS CHRONIC [None]
  - INJURY [None]
  - EMOTIONAL DISTRESS [None]
